FAERS Safety Report 11117307 (Version 6)
Quarter: 2016Q2

REPORT INFORMATION
  Report Type: Report from Study
  Country: PA (occurrence: PA)
  Receive Date: 20150515
  Receipt Date: 20160509
  Transmission Date: 20160815
  Serious: Yes (Hospitalization, Other)
  Sender: FDA-Public Use
  Company Number: PHHY2015PA015768

PATIENT
  Age: 23 Year
  Sex: Female

DRUGS (1)
  1. EXJADE [Suspect]
     Active Substance: DEFERASIROX
     Indication: PRODUCT USED FOR UNKNOWN INDICATION
     Dosage: UNK
     Route: 048

REACTIONS (12)
  - Diarrhoea [Unknown]
  - Pain [Unknown]
  - Arthralgia [Unknown]
  - Pyrexia [Unknown]
  - Malaise [Recovering/Resolving]
  - Haemoglobin decreased [Unknown]
  - Hypotension [Unknown]
  - Musculoskeletal pain [Unknown]
  - Pneumonia [Recovering/Resolving]
  - Lip disorder [Unknown]
  - Dizziness [Unknown]
  - Serum ferritin increased [Unknown]
